FAERS Safety Report 14224854 (Version 1)
Quarter: 2017Q4

REPORT INFORMATION
  Report Type: Spontaneous
  Country: FR (occurrence: FR)
  Receive Date: 20171127
  Receipt Date: 20171127
  Transmission Date: 20180321
  Serious: Yes (Death, Other)
  Sender: FDA-Public Use
  Company Number: FR-ROCHE-2029772

PATIENT
  Age: 69 Year
  Sex: Female

DRUGS (1)
  1. TOCILIZUMAB. [Suspect]
     Active Substance: TOCILIZUMAB
     Indication: SERONEGATIVE ARTHRITIS
     Route: 042
     Dates: start: 201603

REACTIONS (4)
  - Cytomegalovirus infection [Unknown]
  - Drug reaction with eosinophilia and systemic symptoms [Fatal]
  - Histiocytosis haematophagic [Unknown]
  - Hepatic failure [Fatal]

NARRATIVE: CASE EVENT DATE: 201607
